FAERS Safety Report 10673795 (Version 2)
Quarter: 2015Q2

REPORT INFORMATION
  Report Type: Spontaneous
  Country: US (occurrence: None)
  Receive Date: 20141222
  Receipt Date: 20150428
  Transmission Date: 20150821
  Serious: Yes (Other)
  Sender: FDA-Public Use
  Company Number: 2014VER00350

PATIENT
  Age: 16 Year
  Sex: Male
  Weight: 79.4 kg

DRUGS (1)
  1. MYORISAN [Suspect]
     Active Substance: ISOTRETINOIN
     Indication: ACNE
     Route: 048
     Dates: start: 20141107, end: 20141211

REACTIONS (1)
  - Depression [None]

NARRATIVE: CASE EVENT DATE: 20141211
